FAERS Safety Report 10355875 (Version 2)
Quarter: 2014Q4

REPORT INFORMATION
  Report Type: Spontaneous
  Country: CA (occurrence: CA)
  Receive Date: 20140801
  Receipt Date: 20141022
  Transmission Date: 20150528
  Serious: Yes (Hospitalization, Other)
  Sender: FDA-Public Use
  Company Number: CA-ROCHE-1443690

PATIENT
  Age: 20 Year
  Sex: Female

DRUGS (1)
  1. XOLAIR [Suspect]
     Active Substance: OMALIZUMAB
     Indication: ASTHMA
     Route: 058
     Dates: start: 20081008

REACTIONS (4)
  - Pneumonia [Unknown]
  - Hand fracture [Unknown]
  - Lung disorder [Unknown]
  - Asthma [Unknown]

NARRATIVE: CASE EVENT DATE: 20140724
